FAERS Safety Report 9998199 (Version 4)
Quarter: 2014Q3

REPORT INFORMATION
  Report Type: Spontaneous
  Country: AU (occurrence: AU)
  Receive Date: 20140311
  Receipt Date: 20140909
  Transmission Date: 20150326
  Serious: Yes (Other)
  Sender: FDA-Public Use
  Company Number: PHHY2013AU155397

PATIENT
  Sex: Female

DRUGS (1)
  1. EVEROLIMUS [Suspect]
     Active Substance: EVEROLIMUS
     Indication: RENAL AND LIVER TRANSPLANT
     Dosage: UNK
     Dates: end: 201310

REACTIONS (12)
  - Serum procollagen type I N-terminal propeptide increased [Recovered/Resolved]
  - Blood creatinine increased [Unknown]
  - Vomiting [Unknown]
  - Portal hypertension [Unknown]
  - Diarrhoea [Unknown]
  - Ascites [Recovering/Resolving]
  - Osteoporosis [Unknown]
  - Bursitis [Unknown]
  - Viral infection [Unknown]
  - Urine albumin/creatinine ratio decreased [Unknown]
  - Arthralgia [Unknown]
  - Blood pressure decreased [Unknown]
